FAERS Safety Report 17352592 (Version 1)
Quarter: 2020Q1

REPORT INFORMATION
  Report Type: Spontaneous
  Country: US (occurrence: US)
  Receive Date: 20200131
  Receipt Date: 20200131
  Transmission Date: 20200409
  Serious: Yes (Other)
  Sender: FDA-Public Use
  Company Number: US-AMARIN PHARMA, INC.-2020AMR000045

PATIENT
  Sex: Male

DRUGS (1)
  1. VASCEPA [Suspect]
     Active Substance: ICOSAPENT ETHYL
     Indication: PRODUCT USED FOR UNKNOWN INDICATION
     Route: 048
     Dates: start: 202001

REACTIONS (10)
  - Abdominal discomfort [Unknown]
  - Dyspnoea [Unknown]
  - Diarrhoea [Unknown]
  - Micturition urgency [Unknown]
  - Pollakiuria [Unknown]
  - Pain in extremity [Not Recovered/Not Resolved]
  - Underdose [Unknown]
  - Deep vein thrombosis [Not Recovered/Not Resolved]
  - Urinary incontinence [Unknown]
  - Peripheral swelling [Not Recovered/Not Resolved]

NARRATIVE: CASE EVENT DATE: 202001
